FAERS Safety Report 12413341 (Version 1)
Quarter: 2016Q2

REPORT INFORMATION
  Report Type: Report from Study
  Country: CH (occurrence: CH)
  Receive Date: 20160527
  Receipt Date: 20160527
  Transmission Date: 20160815
  Serious: Yes (Other)
  Sender: FDA-Public Use
  Company Number: CH-GILEAD-2016-0215210

PATIENT
  Age: 49 Year
  Sex: Female

DRUGS (17)
  1. CRESTOR [Concomitant]
     Active Substance: ROSUVASTATIN CALCIUM
  2. ATARAX [Concomitant]
     Active Substance: HYDROXYZINE\HYDROXYZINE HYDROCHLORIDE
  3. FEXOFENADINE [Concomitant]
     Active Substance: FEXOFENADINE\FEXOFENADINE HYDROCHLORIDE
  4. EMTRICITABINE/TENOFOVIR DISOPROXIL FUMARATE [Suspect]
     Active Substance: EMTRICITABINE\TENOFOVIR DISOPROXIL
     Indication: HIV INFECTION
     Dosage: UNK
     Route: 065
     Dates: start: 2008
  5. METO ZEROK [Concomitant]
     Active Substance: METOPROLOL SUCCINATE
  6. XARELTO [Concomitant]
     Active Substance: RIVAROXABAN
  7. COMILORID [Concomitant]
     Active Substance: HYDROCHLOROTHIAZIDE
  8. REMERON [Concomitant]
     Active Substance: MIRTAZAPINE
  9. METHADONE [Concomitant]
     Active Substance: METHADONE HYDROCHLORIDE
  10. SERESTA [Concomitant]
     Active Substance: OXAZEPAM
  11. ESOMEP                             /00661201/ [Concomitant]
  12. STILNOX [Concomitant]
     Active Substance: ZOLPIDEM TARTRATE
  13. DOLUTEGRAVIR SODIUM [Suspect]
     Active Substance: DOLUTEGRAVIR SODIUM
     Indication: HIV INFECTION
     Route: 065
  14. REMIFEMIN PLUS [Concomitant]
  15. VICTOZA [Concomitant]
     Active Substance: LIRAGLUTIDE
  16. LEVEMIR [Concomitant]
     Active Substance: INSULIN DETEMIR
  17. NOVORAPID [Concomitant]
     Active Substance: INSULIN ASPART

REACTIONS (2)
  - Nephroangiosclerosis [Unknown]
  - Toxicity to various agents [Unknown]
